FAERS Safety Report 17056954 (Version 1)
Quarter: 2019Q4

REPORT INFORMATION
  Report Type: Spontaneous
  Country: US (occurrence: US)
  Receive Date: 20191022
  Receipt Date: 20191022
  Transmission Date: 20200122
  Serious: Yes (Hospitalization)
  Sender: FDA-Public Use
  Company Number: None

PATIENT
  Age: 59 Year
  Sex: Female

DRUGS (6)
  1. HUMIRA [Suspect]
     Active Substance: ADALIMUMAB
     Indication: PSORIASIS
     Route: 058
     Dates: start: 20190207
  2. ALPRAZOLAM. [Concomitant]
     Active Substance: ALPRAZOLAM
  3. CELECOXIB. [Concomitant]
     Active Substance: CELECOXIB
  4. GABAPENTIN. [Concomitant]
     Active Substance: GABAPENTIN
  5. VENLAFAXINE [Concomitant]
     Active Substance: VENLAFAXINE HYDROCHLORIDE
  6. BUPROPN HCL [Concomitant]
     Active Substance: BUPROPION HYDROCHLORIDE

REACTIONS (1)
  - Spinal operation [None]

NARRATIVE: CASE EVENT DATE: 20191018
